FAERS Safety Report 4685813-3 (Version None)
Quarter: 2005Q2

REPORT INFORMATION
  Report Type: 
  Country: None (occurrence: None)
  Receive Date: 20050609
  Receipt Date: 20050527
  Transmission Date: 20051028
  Serious: Yes (Hospitalization, Other)
  Sender: FDA-Public Use
  Company Number: EMADSS2002007015

PATIENT
  Sex: Female
  Weight: 66 kg

DRUGS (12)
  1. REMICADE [Suspect]
     Route: 041
  2. REMICADE [Suspect]
     Route: 041
  3. REMICADE [Suspect]
     Route: 041
  4. ETHINYL ESTRADIOL-GESTODENE [Suspect]
     Indication: CONTRACEPTION
     Route: 049
     Dates: start: 20010101
  5. GESTODENE AND ETHINYL ESTRADIOL [Suspect]
     Route: 049
  6. ARAVA [Concomitant]
     Indication: RHEUMATOID ARTHRITIS
     Route: 049
  7. CORTANCYL [Concomitant]
     Indication: RHEUMATOID ARTHRITIS
     Route: 049
  8. FELDENE [Concomitant]
     Indication: RHEUMATOID ARTHRITIS
     Route: 049
  9. PARACETAMOL/CODEINE [Concomitant]
     Route: 049
     Dates: start: 20010101
  10. PARACETAMOL/CODEINE [Concomitant]
     Indication: RHEUMATOID ARTHRITIS
     Route: 049
     Dates: start: 20010101
  11. DAFALGAN CODEINE [Concomitant]
     Route: 049
  12. DAFALGAN CODEINE [Concomitant]
     Indication: RHEUMATOID ARTHRITIS
     Route: 049

REACTIONS (1)
  - PULMONARY EMBOLISM [None]
